FAERS Safety Report 24343219 (Version 1)
Quarter: 2024Q3

REPORT INFORMATION
  Report Type: Spontaneous
  Country: CN (occurrence: CN)
  Receive Date: 20240920
  Receipt Date: 20240920
  Transmission Date: 20241016
  Serious: Yes (Hospitalization, Other)
  Sender: STRIDES
  Company Number: CN-STRIDES ARCOLAB LIMITED-2024SP012087

PATIENT
  Age: 66 Year
  Sex: Female

DRUGS (18)
  1. PREDNISOLONE [Suspect]
     Active Substance: PREDNISOLONE
     Indication: Histiocytic sarcoma
     Dosage: UNK, CYCLICAL (CHOP)
     Route: 065
  2. PREDNISOLONE [Suspect]
     Active Substance: PREDNISOLONE
     Dosage: UNK, CYCLICAL (CHOPE)
     Route: 065
  3. PREDNISOLONE [Suspect]
     Active Substance: PREDNISOLONE
     Dosage: UNK, CYCLICAL (AT HIGH-DOSE- AS A PART OF IMOPE REGIMEN)
     Route: 065
  4. ETOPOSIDE [Suspect]
     Active Substance: ETOPOSIDE
     Indication: Histiocytic sarcoma
     Dosage: UNK, CYCLICAL (CHOPE)
     Route: 065
  5. ETOPOSIDE [Suspect]
     Active Substance: ETOPOSIDE
     Dosage: UNK, CYCLICAL (AT HIGH-DOSE- AS A PART OF IMOPE REGIMEN)
     Route: 065
  6. DOXORUBICIN [Suspect]
     Active Substance: DOXORUBICIN
     Indication: Histiocytic sarcoma
     Dosage: UNK, CYCLICAL (CHOP)
     Route: 065
  7. DOXORUBICIN [Suspect]
     Active Substance: DOXORUBICIN
     Dosage: UNK, CYCLICAL (CHOPE)
     Route: 065
  8. IFOSFAMIDE [Suspect]
     Active Substance: IFOSFAMIDE
     Indication: Histiocytic sarcoma
     Dosage: UNK, CYCLICAL (AT HIGH-DOSE- AS A PART OF IMOPE REGIMEN)
     Route: 065
  9. MITOXANTRONE [Suspect]
     Active Substance: MITOXANTRONE HYDROCHLORIDE
     Indication: Histiocytic sarcoma
     Dosage: UNK, CYCLICAL (AT HIGH-DOSE- AS A PART OF IMOPE REGIMEN)
     Route: 065
  10. VINCRISTINE [Suspect]
     Active Substance: VINCRISTINE
     Indication: Histiocytic sarcoma
     Dosage: UNK, CYCLICAL (CHOP)
     Route: 065
  11. VINCRISTINE [Suspect]
     Active Substance: VINCRISTINE
     Dosage: UNK, CYCLICAL (CHOPE)
     Route: 065
  12. VINCRISTINE [Suspect]
     Active Substance: VINCRISTINE
     Dosage: UNK, CYCLICAL (AT HIGH-DOSE- AS A PART OF IMOPE REGIMEN)
     Route: 065
  13. CYCLOPHOSPHAMIDE [Suspect]
     Active Substance: CYCLOPHOSPHAMIDE
     Indication: Histiocytic sarcoma
     Dosage: UNK, CYCLICAL (CHOP)
     Route: 065
  14. CYCLOPHOSPHAMIDE [Suspect]
     Active Substance: CYCLOPHOSPHAMIDE
     Dosage: UNK, CYCLICAL (CHOPE)
     Route: 065
  15. PEMBROLIZUMAB [Suspect]
     Active Substance: PEMBROLIZUMAB
     Indication: Histiocytic sarcoma
     Dosage: UNK, CYCLICAL (IN COMBINATION WITH A GDP REGIMEN)
     Route: 065
  16. GEMCITABINE [Suspect]
     Active Substance: GEMCITABINE
     Indication: Histiocytic sarcoma
     Dosage: UNK, CYCLICAL (GDP REGIMEN)
     Route: 065
  17. CISPLATIN [Suspect]
     Active Substance: CISPLATIN
     Indication: Histiocytic sarcoma
     Dosage: UNK, CYCLICAL (GDP REGIMEN)
     Route: 065
  18. DEXAMETHASONE [Suspect]
     Active Substance: DEXAMETHASONE
     Indication: Histiocytic sarcoma
     Dosage: UNK, CYCLICAL (GDP REGIMEN)
     Route: 065

REACTIONS (6)
  - Myelosuppression [Unknown]
  - Thrombocytopenia [Unknown]
  - Therapy non-responder [Unknown]
  - Malignant neoplasm progression [Recovered/Resolved]
  - Therapy partial responder [Unknown]
  - Off label use [Unknown]
